FAERS Safety Report 24875467 (Version 6)
Quarter: 2025Q4

REPORT INFORMATION
  Report Type: Spontaneous
  Country: JP (occurrence: JP)
  Receive Date: 20250122
  Receipt Date: 20251001
  Transmission Date: 20260118
  Serious: Yes (Hospitalization, Other)
  Sender: BRISTOL-MYERS SQUIBB COMPANY
  Company Number: JP-ONO-2025JP000610

PATIENT
  Age: 77 Year
  Sex: Male

DRUGS (3)
  1. OPDIVO [Suspect]
     Active Substance: NIVOLUMAB
     Indication: Gastric cancer
  2. OPDIVO [Suspect]
     Active Substance: NIVOLUMAB
  3. OPDIVO [Suspect]
     Active Substance: NIVOLUMAB
     Dates: start: 20230224, end: 20230421

REACTIONS (5)
  - Corneal perforation [Recovered/Resolved]
  - Anterior chamber disorder [Recovering/Resolving]
  - Iris adhesions [Unknown]
  - Conjunctivitis [Unknown]
  - Intraocular pressure fluctuation [Unknown]
